FAERS Safety Report 5005593-1 (Version None)
Quarter: 2006Q2

REPORT INFORMATION
  Report Type: 
  Country: None (occurrence: None)
  Receive Date: 20060512
  Receipt Date: 20060428
  Transmission Date: 20061013
  Serious: Yes (Hospitalization)
  Sender: FDA-Public Use
  Company Number: 2006-05-0012

PATIENT
  Age: 49 Year
  Sex: Male

DRUGS (4)
  1. CLARITYN (LORATADINE) TABLETS [Suspect]
     Indication: SEASONAL ALLERGY
     Dosage: 10 MG TIW ORAL
     Route: 048
     Dates: start: 20060201
  2. LISINOPRIL [Concomitant]
  3. ATORVASTATIN CALCIUM [Concomitant]
  4. ASPIRIN [Concomitant]

REACTIONS (1)
  - ATRIAL FIBRILLATION [None]
